FAERS Safety Report 7454336-0 (Version None)
Quarter: 2011Q2

REPORT INFORMATION
  Report Type: 
  Country: None (occurrence: None)
  Receive Date: 20110503
  Receipt Date: 20110427
  Transmission Date: 20111010
  Serious: Yes (Other)
  Sender: FDA-Public Use
  Company Number: US-JNJFOC-20110404288

PATIENT
  Age: 45 Year
  Sex: Male
  Weight: 99.79 kg

DRUGS (5)
  1. FENTANYL-100 [Suspect]
     Indication: NEURALGIA
     Route: 062
  2. OXYCODONE [Concomitant]
     Indication: BREAKTHROUGH PAIN
     Dosage: AS NEEDED
     Route: 048
  3. FENTANYL-100 [Suspect]
     Route: 062
  4. ALLEGRA [Concomitant]
     Indication: MULTIPLE ALLERGIES
     Route: 048
  5. NEURONTIN [Concomitant]
     Indication: NEURALGIA
     Route: 048

REACTIONS (8)
  - NEUROGENIC BLADDER [None]
  - WRONG TECHNIQUE IN DRUG USAGE PROCESS [None]
  - ABNORMAL LOSS OF WEIGHT [None]
  - CYSTITIS [None]
  - BODY HEIGHT DECREASED [None]
  - NEPHROLITHIASIS [None]
  - NEURALGIA [None]
  - INCORRECT DRUG ADMINISTRATION RATE [None]
